FAERS Safety Report 6740358-1 (Version None)
Quarter: 2010Q2

REPORT INFORMATION
  Report Type: 
  Country: None (occurrence: None)
  Receive Date: 20100525
  Receipt Date: 20100520
  Transmission Date: 20101027
  Serious: Yes (Other)
  Sender: FDA-Public Use
  Company Number: BR-BRISTOL-MYERS SQUIBB COMPANY-15116999

PATIENT
  Age: 66 Year
  Sex: Female

DRUGS (1)
  1. APROZIDE [Suspect]

REACTIONS (4)
  - DRUG INEFFECTIVE [None]
  - ERYTHEMA [None]
  - FEELING ABNORMAL [None]
  - HYPERTENSION [None]
